FAERS Safety Report 9863301 (Version 1)
Quarter: 2014Q1

REPORT INFORMATION
  Report Type: Spontaneous
  Country: US (occurrence: US)
  Receive Date: 20140203
  Receipt Date: 20140203
  Transmission Date: 20141002
  Serious: No
  Sender: FDA-Public Use
  Company Number: US-PFIZER INC-2014031109

PATIENT
  Age: 56 Year
  Sex: Female
  Weight: 86.2 kg

DRUGS (5)
  1. LYRICA [Suspect]
     Indication: FIBROMYALGIA
     Dosage: 50 MG, 2X/DAY
  2. LYRICA [Suspect]
     Dosage: 50 MG, AS NEEDED
     Dates: end: 201401
  3. ZOLOFT [Concomitant]
     Dosage: 50 MG, 2X/DAY
  4. SKELAXIN [Concomitant]
     Indication: ARTHROPATHY
     Dosage: 800 MG, AS NEEDED
  5. SKELAXIN [Concomitant]
     Indication: MUSCLE DISORDER

REACTIONS (1)
  - Somnolence [Unknown]
